FAERS Safety Report 6487427-1 (Version None)
Quarter: 2009Q4

REPORT INFORMATION
  Report Type: 
  Country: None (occurrence: None)
  Receive Date: 20091123
  Receipt Date: 20090923
  Transmission Date: 20100525
  Serious: No
  Sender: FDA-Public Use
  Company Number: 8052620

PATIENT
  Age: 60 Year
  Sex: Female
  Weight: 70.4 kg

DRUGS (10)
  1. CIMZIA [Suspect]
     Indication: CROHN'S DISEASE
     Dosage: 400 MG SC
     Route: 058
     Dates: start: 20090601
  2. ASACOL [Concomitant]
  3. BLOOD PRESSURE MEDICATION [Concomitant]
  4. FOLIC ACID [Concomitant]
  5. PREDNISONE [Concomitant]
  6. BENRYL [Concomitant]
  7. ONE A DAY [Concomitant]
  8. CLARITIN [Concomitant]
  9. TYLENOL (CAPLET) [Concomitant]
  10. LOZOL [Concomitant]

REACTIONS (2)
  - FATIGUE [None]
  - OEDEMA PERIPHERAL [None]
